FAERS Safety Report 5414252-2 (Version None)
Quarter: 2007Q3

REPORT INFORMATION
  Report Type: 
  Country: None (occurrence: None)
  Receive Date: 20070814
  Receipt Date: 20070806
  Transmission Date: 20080115
  Serious: Yes (Hospitalization, Other)
  Sender: FDA-Public Use
  Company Number: SY-PFIZER INC-2007064902

PATIENT
  Age: 58 Year
  Sex: Male

DRUGS (4)
  1. ZOLOFT [Suspect]
     Indication: DEPRESSION
     Route: 048
     Dates: start: 20070521, end: 20070526
  2. ZOLOFT [Suspect]
     Indication: PSYCHOTIC DISORDER
  3. ZYPREXA [Concomitant]
     Route: 048
     Dates: start: 20070521, end: 20070526
  4. RISPERDAL [Concomitant]
     Route: 048
     Dates: start: 20070521, end: 20070526

REACTIONS (1)
  - RESPIRATORY DEPRESSION [None]
